FAERS Safety Report 5774035-0 (Version None)
Quarter: 2008Q2

REPORT INFORMATION
  Report Type: 
  Country: None (occurrence: None)
  Receive Date: 20080616
  Receipt Date: 20080603
  Transmission Date: 20081010
  Serious: Yes (Hospitalization)
  Sender: FDA-Public Use
  Company Number: JP-ALLERGAN-0807047US

PATIENT
  Sex: Female

DRUGS (16)
  1. ALESION TABLET [Suspect]
     Indication: TOXIC SKIN ERUPTION
     Dosage: 20 MG, UNK
     Route: 048
     Dates: start: 20070524, end: 20070529
  2. MUCOSTA [Suspect]
     Indication: PEMPHIGUS
     Dosage: 300 MG, UNK
     Route: 048
     Dates: start: 20070227
  3. CORTRIL                            /00028601/ [Concomitant]
     Indication: TOXIC SKIN ERUPTION
     Dosage: 10 MG, UNK
     Dates: start: 20070524, end: 20080313
  4. CORTRIL                            /00028601/ [Concomitant]
     Indication: PEMPHIGUS
  5. IMURAN                             /00001501/ [Concomitant]
     Indication: TOXIC SKIN ERUPTION
     Dates: start: 20080509
  6. IMURAN                             /00001501/ [Concomitant]
     Indication: PEMPHIGUS
  7. PREDONINE [Concomitant]
     Indication: TOXIC SKIN ERUPTION
     Dosage: 7 MG, UNK
  8. PREDONINE [Concomitant]
     Indication: PEMPHIGUS
  9. ITRIZOLE [Concomitant]
     Indication: TOXIC SKIN ERUPTION
     Dates: start: 20070531
  10. ITRIZOLE [Concomitant]
     Indication: PEMPHIGUS
  11. NEO-MINOPHAGEN C [Concomitant]
     Indication: TOXIC SKIN ERUPTION
     Dosage: 60 ML, QD
     Route: 042
     Dates: start: 20070608, end: 20070620
  12. NEO-MINOPHAGEN C [Concomitant]
     Indication: PEMPHIGUS
  13. ADELAVIN [Concomitant]
     Indication: TOXIC SKIN ERUPTION
     Dosage: 2 UG, QD
     Route: 042
     Dates: end: 20070620
  14. ADELAVIN [Concomitant]
     Indication: PEMPHIGUS
  15. URSO                               /00465701/ [Concomitant]
     Indication: TOXIC SKIN ERUPTION
     Dosage: 600 MG, QD
     Route: 048
     Dates: start: 20070608, end: 20070630
  16. URSO                               /00465701/ [Concomitant]
     Indication: PEMPHIGUS

REACTIONS (1)
  - LIVER DISORDER [None]
